FAERS Safety Report 16817989 (Version 1)
Quarter: 2019Q3

REPORT INFORMATION
  Report Type: Other
  Country: IE (occurrence: IE)
  Receive Date: 20190917
  Receipt Date: 20190917
  Transmission Date: 20191005
  Serious: Yes (Death)
  Sender: FDA-Public Use
  Company Number: IE-INTERCEPT-PM2019001542

PATIENT
  Age: 70 Year
  Sex: Male

DRUGS (1)
  1. OCALIVA [Suspect]
     Active Substance: OBETICHOLIC ACID
     Indication: PRIMARY BILIARY CHOLANGITIS
     Dosage: 10 MG, QD
     Route: 048

REACTIONS (2)
  - Product prescribing error [Unknown]
  - Death [Fatal]

NARRATIVE: CASE EVENT DATE: 20190815
